FAERS Safety Report 6927755-6 (Version None)
Quarter: 2010Q3

REPORT INFORMATION
  Report Type: 
  Country: None (occurrence: None)
  Receive Date: 20100816
  Receipt Date: 20100816
  Transmission Date: 20110219
  Serious: Yes (Hospitalization, Other)
  Sender: FDA-Public Use
  Company Number: None

PATIENT
  Age: 81 Year
  Sex: Male
  Weight: 81.6475 kg

DRUGS (1)
  1. ALIMTA [Suspect]

REACTIONS (10)
  - ASTHENIA [None]
  - BLOOD COUNT ABNORMAL [None]
  - BLOOD URINE PRESENT [None]
  - BODY TEMPERATURE INCREASED [None]
  - COGNITIVE DISORDER [None]
  - CONFUSIONAL STATE [None]
  - DYSSTASIA [None]
  - MUSCLE RIGIDITY [None]
  - RASH ERYTHEMATOUS [None]
  - SPEECH DISORDER [None]
